FAERS Safety Report 6654954-3 (Version None)
Quarter: 2010Q1

REPORT INFORMATION
  Report Type: 
  Country: None (occurrence: None)
  Receive Date: 20100329
  Receipt Date: 20100319
  Transmission Date: 20100710
  Serious: No
  Sender: FDA-Public Use
  Company Number: US-BIOGENIDEC-2010BI009334

PATIENT
  Age: 61 Year
  Sex: Female

DRUGS (2)
  1. AVONEX [Suspect]
     Indication: MULTIPLE SCLEROSIS
     Route: 030
     Dates: start: 20010910, end: 20030101
  2. AVONEX [Suspect]
     Route: 030
     Dates: start: 20030101

REACTIONS (5)
  - CALCIFICATION OF MUSCLE [None]
  - GAIT DISTURBANCE [None]
  - INJECTION SITE HAEMORRHAGE [None]
  - MUSCULOSKELETAL DISORDER [None]
  - PAIN IN EXTREMITY [None]
